FAERS Safety Report 24799320 (Version 2)
Quarter: 2025Q3

REPORT INFORMATION
  Report Type: Spontaneous
  Country: CN (occurrence: CN)
  Receive Date: 20250102
  Receipt Date: 20250810
  Transmission Date: 20251021
  Serious: Yes (Hospitalization)
  Sender: ALEXION PHARMACEUTICALS
  Company Number: CN-sdluye-SDLY2024124326

PATIENT
  Age: 14 Year
  Sex: Female
  Weight: 41 kg

DRUGS (4)
  1. SEROQUEL [Suspect]
     Active Substance: QUETIAPINE FUMARATE
     Indication: Depressed mood
     Dates: start: 20241205, end: 20241205
  2. LORAZEPAM [Suspect]
     Active Substance: LORAZEPAM
     Indication: Depressed mood
     Dates: start: 20241205, end: 20241205
  3. DIAZEPAM [Suspect]
     Active Substance: DIAZEPAM
     Indication: Depressed mood
     Dates: start: 20241205, end: 20241205
  4. FLUOXETINE HYDROCHLORIDE [Suspect]
     Active Substance: FLUOXETINE HYDROCHLORIDE
     Indication: Depressed mood
     Dates: start: 20241205, end: 20241205

REACTIONS (4)
  - Intentional overdose [Recovering/Resolving]
  - Somnolence [Recovering/Resolving]
  - Dizziness [Recovering/Resolving]
  - Off label use [Recovering/Resolving]

NARRATIVE: CASE EVENT DATE: 20241205
